FAERS Safety Report 22247680 (Version 1)
Quarter: 2023Q2

REPORT INFORMATION
  Report Type: Spontaneous
  Country: US (occurrence: US)
  Receive Date: 20230425
  Receipt Date: 20230425
  Transmission Date: 20230722
  Serious: No
  Sender: FDA-Public Use
  Company Number: US-Melinta Therapeutics, LLC-US-MLNT-23-00032

PATIENT
  Sex: Female

DRUGS (6)
  1. METOPROLOL SUCCINATE [Suspect]
     Active Substance: METOPROLOL SUCCINATE
     Indication: Product used for unknown indication
     Dosage: SHE WAS GIVEN A WHOLE DOSE OF METOPROLOL.
     Route: 065
  2. METOPROLOL SUCCINATE [Suspect]
     Active Substance: METOPROLOL SUCCINATE
     Dosage: NOT PROVIDED.
     Route: 065
  3. CALQUENCE [Concomitant]
     Active Substance: ACALABRUTINIB
     Indication: Chronic lymphocytic leukaemia
     Dosage: NOT PROVIDED.
     Route: 048
     Dates: start: 202209
  4. KEFLEX [Concomitant]
     Active Substance: CEPHALEXIN
     Indication: Urinary tract infection
     Dosage: NOT PROVIDED.
     Route: 065
  5. AMOXICILLIN [Concomitant]
     Active Substance: AMOXICILLIN
     Indication: Cough
     Dosage: NOT PROVIDED.
     Route: 065
  6. MYCITRACIN [Concomitant]
     Active Substance: BACITRACIN\NEOMYCIN SULFATE\POLYMYXIN B SULFATE
     Indication: Cough
     Dosage: NOT PROVIDED.
     Route: 065

REACTIONS (3)
  - Limb injury [Unknown]
  - Fall [Unknown]
  - Drug intolerance [Unknown]
